FAERS Safety Report 4513200-7 (Version None)
Quarter: 2004Q4

REPORT INFORMATION
  Report Type: 
  Country: None (occurrence: None)
  Receive Date: 20041124
  Receipt Date: 20041119
  Transmission Date: 20050328
  Serious: Yes (Congenital Anomaly)
  Sender: FDA-Public Use
  Company Number: THQ2004A00977

PATIENT
  Sex: Male

DRUGS (3)
  1. LUCRIN DEPOT INJECTION (LEURPOLIDE ACETATE) (INJECTION) [Suspect]
     Dosage: 3.75(3.75 MG, 1 IN 1 M)
     Route: 064
     Dates: start: 20030601, end: 20030601
  2. GONADOTROPIN CHIORIONIC (CHORIONIC GONADOTROPIN) [Concomitant]
     Route: 064
  3. FOLLITROPIN ALPHA [Suspect]
     Route: 064
     Dates: start: 20030601

REACTIONS (2)
  - CONGENITAL EYE DISORDER [None]
  - DRUG EXPOSURE DURING PREGNANCY [None]
